FAERS Safety Report 5718922-8 (Version None)
Quarter: 2008Q2

REPORT INFORMATION
  Report Type: 
  Country: None (occurrence: None)
  Receive Date: 20080425
  Receipt Date: 20080421
  Transmission Date: 20081010
  Serious: Yes (Hospitalization)
  Sender: FDA-Public Use
  Company Number: IT-ABBOTT-07P-083-0363883-00

PATIENT
  Sex: Female
  Weight: 62 kg

DRUGS (8)
  1. HUMIRA [Suspect]
     Indication: RHEUMATOID ARTHRITIS
     Route: 058
     Dates: start: 20050824, end: 20060411
  2. HUMIRA [Suspect]
     Route: 058
     Dates: start: 20060411
  3. NEURONTIN [Concomitant]
     Indication: POLYNEUROPATHY
     Dates: start: 20051213
  4. PREDNISONE [Concomitant]
     Indication: RHEUMATOID ARTHRITIS
     Dates: start: 20050824
  5. INDOMETHACIN [Concomitant]
     Indication: RHEUMATOID ARTHRITIS
     Dates: start: 20050824
  6. FENTANYL CITRATE [Concomitant]
     Indication: RHEUMATOID ARTHRITIS
     Dates: start: 20050824
  7. METHOTREXATE [Concomitant]
     Indication: RHEUMATOID ARTHRITIS
     Dates: start: 20060124, end: 20060411
  8. METHOTREXATE [Concomitant]
     Dates: start: 20050921, end: 20060124

REACTIONS (3)
  - BALANCE DISORDER [None]
  - GAIT DISTURBANCE [None]
  - POLYNEUROPATHY [None]
